FAERS Safety Report 6273527-8 (Version None)
Quarter: 2009Q3

REPORT INFORMATION
  Report Type: 
  Country: None (occurrence: None)
  Receive Date: 20090720
  Receipt Date: 20090710
  Transmission Date: 20100115
  Serious: Yes (Hospitalization)
  Sender: FDA-Public Use
  Company Number: JP-NOVOPROD-289255

PATIENT
  Age: 37 Year
  Sex: Male

DRUGS (6)
  1. PENFILL N CHU [Suspect]
     Indication: TYPE 1 DIABETES MELLITUS
     Dosage: UNK IU, UNK
     Route: 058
  2. PENFILL N CHU [Suspect]
     Dosage: 600 IU, UNK
  3. PENFILL N CHU [Suspect]
  4. HUMALOG [Concomitant]
     Indication: TYPE 1 DIABETES MELLITUS
     Dosage: 1050 U, UNK
     Route: 058
  5. LENDORMIN [Concomitant]
     Indication: DRUG USE FOR UNKNOWN INDICATION
     Dosage: 3.5 MG, QD
     Route: 048
  6. EURODIN                            /00401202/ [Concomitant]
     Indication: DRUG USE FOR UNKNOWN INDICATION
     Dosage: 28 MG, QD
     Route: 048

REACTIONS (2)
  - HYPOGLYCAEMIA [None]
  - SUICIDE ATTEMPT [None]
